FAERS Safety Report 11661908 (Version 1)
Quarter: 2015Q4

REPORT INFORMATION
  Report Type: Spontaneous
  Country: FR (occurrence: FR)
  Receive Date: 20151026
  Receipt Date: 20151026
  Transmission Date: 20160304
  Serious: Yes (Hospitalization)
  Sender: FDA-Public Use
  Company Number: FR-009507513-1510FRA009985

PATIENT
  Age: 77 Year
  Sex: Male

DRUGS (3)
  1. TIENAM IV 250MG/250MG, POUDRE POUR PERFUSION [Suspect]
     Active Substance: CILASTATIN SODIUM\IMIPENEM
     Dosage: 3000 MG QD
     Dates: start: 20150711, end: 20150907
  2. ZECLAR [Suspect]
     Active Substance: CLARITHROMYCIN
     Dosage: 1000 MG QD
     Dates: start: 20150818, end: 20150825
  3. BACTRIM [Suspect]
     Active Substance: SULFAMETHOXAZOLE\TRIMETHOPRIM
     Indication: INFECTION
     Dosage: UNK
     Dates: start: 20150811, end: 20150824

REACTIONS (1)
  - Tubulointerstitial nephritis [Recovered/Resolved]

NARRATIVE: CASE EVENT DATE: 20150824
